FAERS Safety Report 4984431-7 (Version None)
Quarter: 2006Q2

REPORT INFORMATION
  Report Type: 
  Country: None (occurrence: None)
  Receive Date: 20060427
  Receipt Date: 20060425
  Transmission Date: 20061013
  Serious: Yes (Hospitalization)
  Sender: FDA-Public Use
  Company Number: US-GLAXOSMITHKLINE-A0603220A

PATIENT
  Age: 85 Year
  Sex: Female

DRUGS (3)
  1. ADVAIR DISKUS 100/50 [Suspect]
     Indication: CHRONIC OBSTRUCTIVE PULMONARY DISEASE
     Dosage: 2PUFF TWICE PER DAY
     Route: 055
  2. ARICEPT [Concomitant]
  3. CHOLESTEROL REDUCING AGENT [Concomitant]

REACTIONS (10)
  - ASTHMA [None]
  - BLOOD PRESSURE DECREASED [None]
  - COUGH [None]
  - DEHYDRATION [None]
  - DRUG ADMINISTRATION ERROR [None]
  - DRUG DOSE OMISSION [None]
  - INCORRECT DOSE ADMINISTERED [None]
  - NAUSEA [None]
  - SYNCOPE [None]
  - WHEEZING [None]
